FAERS Safety Report 4543183-5 (Version None)
Quarter: 2005Q1

REPORT INFORMATION
  Report Type: 
  Country: None (occurrence: None)
  Receive Date: 20050103
  Receipt Date: 20041220
  Transmission Date: 20050727
  Serious: Yes (Hospitalization)
  Sender: FDA-Public Use
  Company Number: JP-JNJFOC-20041202814

PATIENT
  Age: 71 Year
  Sex: Female

DRUGS (16)
  1. ITRACONAZOLE [Suspect]
     Route: 049
     Dates: end: 20041118
  2. MICAFUNGIN SODIUM [Suspect]
     Route: 065
  3. CLARITHROMYCIN [Concomitant]
     Route: 049
  4. AZULENE SULFONATE SODIUM [Concomitant]
     Route: 049
  5. CARBOCISTEINE [Concomitant]
     Route: 049
  6. DEXTROMETHORPHAN HYDROBROMIDE [Concomitant]
     Route: 049
  7. CETIRIZINE HCL [Concomitant]
     Route: 049
  8. PURSENNID [Concomitant]
     Route: 065
  9. NICORANDIL [Concomitant]
     Route: 049
  10. ACTONEL [Concomitant]
     Route: 049
  11. FLECAINIDE ACETATE [Concomitant]
     Route: 049
  12. MAINTATE [Concomitant]
     Route: 049
  13. LEVOTHYROXINE SODIUM [Concomitant]
     Route: 049
  14. ASPIRIN [Concomitant]
     Route: 049
  15. LANSOPRAZOLE [Concomitant]
     Route: 049
  16. SULPIRIDE [Concomitant]
     Route: 049

REACTIONS (9)
  - C-REACTIVE PROTEIN INCREASED [None]
  - COMPUTERISED TOMOGRAM ABNORMAL [None]
  - COUGH [None]
  - INFLAMMATION [None]
  - PNEUMONITIS [None]
  - PO2 DECREASED [None]
  - PRURITUS [None]
  - PYREXIA [None]
  - WHITE BLOOD CELL COUNT INCREASED [None]
